FAERS Safety Report 5256926-2 (Version None)
Quarter: 2007Q1

REPORT INFORMATION
  Report Type: 
  Country: None (occurrence: None)
  Receive Date: 20070305
  Receipt Date: 20070305
  Transmission Date: 20070707
  Serious: Yes (Hospitalization)
  Sender: FDA-Public Use
  Company Number: None

PATIENT
  Sex: Female
  Weight: 72.5755 kg

DRUGS (2)
  1. OXALIPLATIN [Suspect]
     Indication: METASTATIC CARCINOMA OF THE BLADDER
     Dosage: 110MG/M2  Q 21 DAYS IV DRIP
     Route: 041
     Dates: start: 20061213, end: 20061213
  2. DOCETAXOL [Suspect]
     Indication: METASTATIC CARCINOMA OF THE BLADDER
     Dosage: 60MG/M2  Q 21 DAYS  IV DRIP
     Route: 041
     Dates: start: 20061213, end: 20061213

REACTIONS (10)
  - DIARRHOEA [None]
  - HAEMOGLOBIN DECREASED [None]
  - HYPOKALAEMIA [None]
  - HYPOMAGNESAEMIA [None]
  - ILL-DEFINED DISORDER [None]
  - LIVER FUNCTION TEST ABNORMAL [None]
  - METASTASES TO LIVER [None]
  - NAUSEA [None]
  - URINARY TRACT INFECTION [None]
  - VOMITING [None]
